FAERS Safety Report 22098550 (Version 1)
Quarter: 2023Q1

REPORT INFORMATION
  Report Type: Report from Study
  Country: US (occurrence: US)
  Receive Date: 20230315
  Receipt Date: 20230315
  Transmission Date: 20230417
  Serious: Yes (Hospitalization, Other)
  Sender: FDA-Public Use
  Company Number: US-EXELIXIS-XL18423061562

PATIENT

DRUGS (4)
  1. CABOZANTINIB [Suspect]
     Active Substance: CABOZANTINIB
     Indication: Bladder transitional cell carcinoma
     Dosage: 40 MG, QD
     Route: 048
     Dates: start: 20220209, end: 20220307
  2. NIVOLUMAB [Suspect]
     Active Substance: NIVOLUMAB
     Indication: Bladder transitional cell carcinoma
     Dosage: 3 MG/KG ON DAY 1
     Route: 042
     Dates: start: 20220207, end: 20220228
  3. IPILIMUMAB [Suspect]
     Active Substance: IPILIMUMAB
     Indication: Bladder transitional cell carcinoma
     Dosage: 1 MG/KG ON DAY 1
     Route: 042
     Dates: start: 20220207, end: 20220228
  4. ONDANSETRON [Suspect]
     Active Substance: ONDANSETRON
     Indication: Product used for unknown indication
     Dosage: UNK

REACTIONS (6)
  - Pneumonitis [Recovering/Resolving]
  - Anaemia [Recovering/Resolving]
  - Aspartate aminotransferase increased [Recovering/Resolving]
  - Embolism [Recovering/Resolving]
  - Urinary tract obstruction [Recovering/Resolving]
  - Electrocardiogram QT prolonged [Recovered/Resolved]

NARRATIVE: CASE EVENT DATE: 20220311
